FAERS Safety Report 9109737 (Version 1)
Quarter: 2013Q1

REPORT INFORMATION
  Report Type: Spontaneous
  Country: US (occurrence: US)
  Receive Date: 20130222
  Receipt Date: 20130222
  Transmission Date: 20140127
  Serious: Yes (Other)
  Sender: FDA-Public Use
  Company Number: US-TEVA-387480USA

PATIENT
  Age: 8 Year
  Sex: Female

DRUGS (5)
  1. MERCAPTOPURINE [Suspect]
     Indication: ACUTE LYMPHOCYTIC LEUKAEMIA
     Dosage: NIGHTLY
     Route: 048
  2. METHOTREXATE [Concomitant]
     Dosage: WEEKLY
     Route: 048
  3. METHOTREXATE [Concomitant]
     Dosage: EVERY 3MOS
     Route: 037
  4. VINCRISTINE [Concomitant]
     Dosage: MONTHLY
     Route: 065
  5. PREDNISONE [Concomitant]
     Dosage: PULSE; 5D
     Route: 065

REACTIONS (2)
  - Hypoglycaemia [Unknown]
  - Hypothalamo-pituitary disorder [Unknown]
